FAERS Safety Report 8224850-9 (Version None)
Quarter: 2012Q1

REPORT INFORMATION
  Report Type: 
  Country: None (occurrence: None)
  Receive Date: 20120321
  Receipt Date: 20120315
  Transmission Date: 20120608
  Serious: Yes (Other)
  Sender: FDA-Public Use
  Company Number: US-ROCHE-791290

PATIENT
  Sex: Male
  Weight: 74.8 kg

DRUGS (1)
  1. ACCUTANE [Suspect]
     Indication: ACNE
     Route: 065
     Dates: start: 19921001, end: 19940101

REACTIONS (10)
  - INFLAMMATORY BOWEL DISEASE [None]
  - IRRITABLE BOWEL SYNDROME [None]
  - ANAL FISSURE [None]
  - COLITIS ULCERATIVE [None]
  - PERIRECTAL ABSCESS [None]
  - IRON DEFICIENCY ANAEMIA [None]
  - CROHN'S DISEASE [None]
  - DEPRESSION [None]
  - INTESTINAL OBSTRUCTION [None]
  - ANAL FISTULA [None]
